FAERS Safety Report 17895871 (Version 1)
Quarter: 2020Q2

REPORT INFORMATION
  Report Type: Report from Study
  Country: US (occurrence: US)
  Receive Date: 20200615
  Receipt Date: 20200615
  Transmission Date: 20200714
  Serious: Yes (Hospitalization)
  Sender: FDA-Public Use
  Company Number: US-PFIZER INC-2018-04902

PATIENT
  Age: 45 Year
  Sex: Female
  Weight: 66.6 kg

DRUGS (2)
  1. BINIMETINIB [Suspect]
     Active Substance: BINIMETINIB
     Indication: NON-SMALL CELL LUNG CANCER
     Dosage: 45 MG, 2X/DAY
     Route: 048
     Dates: start: 20181213, end: 20181226
  2. PALBOCICLIB [Suspect]
     Active Substance: PALBOCICLIB
     Indication: NON-SMALL CELL LUNG CANCER
     Dosage: 100 MG, 1X/DAY (FOR 28DAYS)
     Route: 048
     Dates: start: 20181213, end: 20181226

REACTIONS (2)
  - Dermatitis acneiform [Not Recovered/Not Resolved]
  - Stomatitis [Not Recovered/Not Resolved]

NARRATIVE: CASE EVENT DATE: 20181226
